FAERS Safety Report 6970487-9 (Version None)
Quarter: 2010Q3

REPORT INFORMATION
  Report Type: 
  Country: None (occurrence: None)
  Receive Date: 20100903
  Receipt Date: 20100826
  Transmission Date: 20110219
  Serious: Yes (Hospitalization, Other)
  Sender: FDA-Public Use
  Company Number: 017098

PATIENT
  Sex: Male
  Weight: 80 kg

DRUGS (4)
  1. CIMZIA [Suspect]
     Indication: RHEUMATOID ARTHRITIS
     Dosage: (400 MG 1X/4 WEEKS SUBCUTANEOUS)
     Route: 058
     Dates: start: 20030601, end: 20050801
  2. MTX /00113801/ [Concomitant]
  3. COXIBS [Concomitant]
  4. GLUCOCORTICOIDS [Concomitant]

REACTIONS (4)
  - HIP ARTHROPLASTY [None]
  - HYPERGAMMAGLOBULINAEMIA [None]
  - MUSCULOSKELETAL STIFFNESS [None]
  - SEXUAL DYSFUNCTION [None]
